FAERS Safety Report 6361986-1 (Version None)
Quarter: 2009Q3

REPORT INFORMATION
  Report Type: 
  Country: None (occurrence: None)
  Receive Date: 20090918
  Receipt Date: 20090914
  Transmission Date: 20100115
  Serious: Yes (Death)
  Sender: FDA-Public Use
  Company Number: US-WYE-H10982909

PATIENT
  Sex: Male
  Weight: 85.81 kg

DRUGS (1)
  1. PRISTIQ [Suspect]
     Indication: MAJOR DEPRESSION
     Route: 048
     Dates: start: 20090801, end: 20090801

REACTIONS (1)
  - COMPLETED SUICIDE [None]
